FAERS Safety Report 21166279 (Version 1)
Quarter: 2022Q3

REPORT INFORMATION
  Report Type: Spontaneous
  Country: US (occurrence: None)
  Receive Date: 20220802
  Receipt Date: 20220802
  Transmission Date: 20221026
  Serious: Yes (Hospitalization)
  Sender: FDA-Public Use
  Company Number: None

PATIENT
  Age: 75 Year
  Sex: Female
  Weight: 121.56 kg

DRUGS (15)
  1. DEFERASIROX [Suspect]
     Active Substance: DEFERASIROX
     Indication: Acute myeloid leukaemia
     Dosage: FREQUENCY : DAILY;?
     Route: 048
  2. DEFERASIROX [Suspect]
     Active Substance: DEFERASIROX
  3. ALBUTEROL SULFATE [Concomitant]
  4. AZELASTINE [Concomitant]
  5. CETIRIZINE [Concomitant]
  6. SUCRALFATE [Concomitant]
  7. VITAMIN D3 [Concomitant]
  8. DECITABINE INTRAVENOUS [Concomitant]
  9. FLONASE ALLERGY [Concomitant]
  10. HEPARIN LOCK FLUSH [Concomitant]
  11. LEVOTHYROXINE SODIUM [Concomitant]
  12. LIDOCAINE-PRILOCAINE [Concomitant]
  13. LISINOPRIL-HYDROCHLOROTHIAZIDE [Concomitant]
  14. SIMVASTATIN [Concomitant]
  15. SODIUM CHLORIDE FLUSH [Concomitant]

REACTIONS (1)
  - Hospitalisation [None]
